FAERS Safety Report 7091030-2 (Version None)
Quarter: 2010Q4

REPORT INFORMATION
  Report Type: 
  Country: None (occurrence: None)
  Receive Date: 20101105
  Receipt Date: 20101105
  Transmission Date: 20110411
  Serious: Yes (Hospitalization)
  Sender: FDA-Public Use
  Company Number: None

PATIENT
  Sex: Male
  Weight: 86.18 kg

DRUGS (5)
  1. ERBITUX [Suspect]
     Dosage: 498 MG
     Dates: end: 20101027
  2. GLIPIZIDE [Concomitant]
  3. METFORMIN [Concomitant]
  4. METOPROLOL TARTRATE [Concomitant]
  5. SIMVASTATIN [Concomitant]

REACTIONS (3)
  - CONFUSIONAL STATE [None]
  - SEPSIS [None]
  - WHITE BLOOD CELL COUNT INCREASED [None]
